FAERS Safety Report 6848993-7 (Version None)
Quarter: 2010Q3

REPORT INFORMATION
  Report Type: 
  Country: None (occurrence: None)
  Receive Date: 20100716
  Receipt Date: 20070925
  Transmission Date: 20110219
  Serious: Yes (Other)
  Sender: FDA-Public Use
  Company Number: US-PFIZER INC-2007081318

PATIENT
  Age: 85 Year
  Sex: Female

DRUGS (2)
  1. CHANTIX [Suspect]
     Dosage: DAILY
  2. COREG [Concomitant]

REACTIONS (1)
  - HYPOTENSION [None]
